FAERS Safety Report 9898168 (Version 2)
Quarter: 2014Q1

REPORT INFORMATION
  Report Type: Spontaneous
  Country: US (occurrence: US)
  Receive Date: 20140214
  Receipt Date: 20140219
  Transmission Date: 20141002
  Serious: Yes (Other)
  Sender: FDA-Public Use
  Company Number: US-BAYER-2014-020974

PATIENT
  Age: 58 Year
  Sex: Female
  Weight: 136 kg

DRUGS (8)
  1. BAYER EXTRA STRENGTH BACK + BODY PAIN [Suspect]
     Indication: TOOTHACHE
     Dosage: 2 DF, UNK
     Route: 048
     Dates: start: 2014
  2. HYDROCHLOROTHIAZIDE [Concomitant]
  3. ATENOLOL [Concomitant]
  4. LISINOPRIL [Concomitant]
  5. LEVOQUIN [Concomitant]
  6. PRAVASTATIN [Concomitant]
  7. NORVASC [Concomitant]
  8. PRILOSEC [Concomitant]

REACTIONS (2)
  - Blood urine present [Not Recovered/Not Resolved]
  - Pelvic pain [Not Recovered/Not Resolved]
